FAERS Safety Report 4741057-8 (Version None)
Quarter: 2005Q3

REPORT INFORMATION
  Report Type: 
  Country: None (occurrence: None)
  Receive Date: 20050810
  Receipt Date: 20050610
  Transmission Date: 20060218
  Serious: No
  Sender: FDA-Public Use
  Company Number: US-GLAXOSMITHKLINE-A0562099A

PATIENT
  Age: 72 Year
  Sex: Female

DRUGS (2)
  1. PAXIL [Suspect]
     Dosage: 40MG UNKNOWN
     Route: 048
     Dates: start: 20040901
  2. ANESTHESIA [Concomitant]

REACTIONS (2)
  - ANXIETY [None]
  - DISORIENTATION [None]
